FAERS Safety Report 23173680 (Version 1)
Quarter: 2023Q4

REPORT INFORMATION
  Report Type: Report from Study
  Country: IT (occurrence: IT)
  Receive Date: 20231111
  Receipt Date: 20231111
  Transmission Date: 20240109
  Serious: Yes (Hospitalization, Other)
  Sender: FDA-Public Use
  Company Number: IT-UCBSA-2022024363

PATIENT
  Sex: Female

DRUGS (9)
  1. LACOSAMIDE [Suspect]
     Active Substance: LACOSAMIDE
     Indication: Epilepsy
     Dosage: 50 MILLIGRAM, HALF A 50MG TABLET ,56 FILM-COATED TABLET, OFF LABEL USE FOR DOSE.
     Route: 065
  2. LACOSAMIDE [Suspect]
     Active Substance: LACOSAMIDE
     Dosage: 300 MILLIGRAM DAILY; 150 MILLIGRAM, 2X/DAY (BID)
     Route: 065
     Dates: start: 202204
  3. LACOSAMIDE [Suspect]
     Active Substance: LACOSAMIDE
     Dosage: 150MG IN THE MORNING AND 200MG IN THE EVENING,
     Route: 065
     Dates: start: 202204, end: 202204
  4. LACOSAMIDE [Suspect]
     Active Substance: LACOSAMIDE
     Dosage: 400 MILLIGRAM DAILY; 200 MILLIGRAM, 2X/DAY (BID),
     Route: 065
  5. KEPPRA [Suspect]
     Active Substance: LEVETIRACETAM
     Indication: Epilepsy
     Dosage: 1500 MILLIGRAM IN MORNING AND 1000 MILLIGRAM IN EVENING
     Route: 065
  6. KEPPRA [Suspect]
     Active Substance: LEVETIRACETAM
     Dosage: 1000 MILLIGRAM DAILY; 500 MILLIGRAM, 2X/DAY (BID), UNIT DOSE: 1000 MG, THERAPY END DATE : NOT ASKED
     Route: 065
     Dates: start: 202204
  7. KEPPRA [Suspect]
     Active Substance: LEVETIRACETAM
     Dosage: 500 MILLIGRAM DAILY; 250 MILLIGRAM, 2X/DAY (BID), THERAPY START DATE AND THERAPY END DATE : ASKED BU
     Route: 065
  8. KEPPRA [Suspect]
     Active Substance: LEVETIRACETAM
     Dosage: 500 MILLIGRAM, 60 FILM COATED TABLETS, UNIT DOSE : 500 MG
     Route: 065
  9. TETANUS TOXOID ADSORBED (VACCINE) [Concomitant]
     Active Substance: CLOSTRIDIUM TETANI TOXOID ANTIGEN (FORMALDEHYDE INACTIVATED)
     Indication: Product used for unknown indication
     Dosage: UNK

REACTIONS (11)
  - Fall [Recovered/Resolved]
  - Skin abrasion [Recovered/Resolved]
  - Metastases to bone [Unknown]
  - Dry mouth [Unknown]
  - Somnolence [Unknown]
  - Confusional state [Unknown]
  - Dyspnoea [Unknown]
  - Off label use [Unknown]
  - Gait disturbance [Unknown]
  - Balance disorder [Unknown]
  - Fatigue [Unknown]
